FAERS Safety Report 17691971 (Version 2)
Quarter: 2020Q2

REPORT INFORMATION
  Report Type: Spontaneous
  Country: US (occurrence: US)
  Receive Date: 20200422
  Receipt Date: 20200429
  Transmission Date: 20200714
  Serious: No
  Sender: FDA-Public Use
  Company Number: US-SA-2020SA102056

PATIENT
  Age: 71 Year
  Sex: Female

DRUGS (1)
  1. PRALUENT [Suspect]
     Active Substance: ALIROCUMAB
     Indication: ARTERIOSCLEROSIS
     Dosage: 75 MG, QOW

REACTIONS (6)
  - Injection site haemorrhage [Unknown]
  - Hyperventilation [Unknown]
  - Product dose omission [Unknown]
  - Fear of injection [Unknown]
  - Product storage error [Unknown]
  - Palpitations [Unknown]
